FAERS Safety Report 5192116-X (Version None)
Quarter: 2006Q4

REPORT INFORMATION
  Report Type: 
  Country: None (occurrence: None)
  Receive Date: 20061220
  Receipt Date: 20061206
  Transmission Date: 20070319
  Serious: Yes (Hospitalization)
  Sender: FDA-Public Use
  Company Number: 232008

PATIENT
  Age: 63 Year
  Sex: Female

DRUGS (7)
  1. AVASTIN [Suspect]
     Indication: COLORECTAL CANCER
     Dosage: SEE IMAGE
     Route: 042
     Dates: start: 20060315
  2. CAPECITABINE (CAPECITABINE) [Suspect]
     Indication: COLORECTAL CANCER
     Dosage: SEE IMAGE
     Route: 048
     Dates: start: 20060315
  3. OXALIPLATIN [Suspect]
     Indication: COLORECTAL CANCER
     Dosage: 247 MG, Q3W, INTRAVENOUS
     Route: 042
     Dates: start: 20060315
  4. ATENOLOL [Concomitant]
  5. ACETAMINOPHEN [Concomitant]
  6. TRAMADOL HCL [Concomitant]
  7. AMLODIPINE BESYLATE [Concomitant]

REACTIONS (6)
  - BLOOD CREATININE INCREASED [None]
  - C-REACTIVE PROTEIN INCREASED [None]
  - COLON CANCER [None]
  - NAUSEA [None]
  - ORAL INTAKE REDUCED [None]
  - VOMITING [None]
